FAERS Safety Report 9503197 (Version 1)
Quarter: 2013Q3

REPORT INFORMATION
  Report Type: Spontaneous
  Country: US (occurrence: US)
  Receive Date: 20130906
  Receipt Date: 20130906
  Transmission Date: 20140515
  Serious: No
  Sender: FDA-Public Use
  Company Number: US-PFIZER INC-2013254709

PATIENT
  Sex: Female

DRUGS (1)
  1. ADVIL [Suspect]
     Dosage: TWO TABLETS, UNK
     Route: 048
     Dates: start: 20130802

REACTIONS (3)
  - Wrong technique in drug usage process [Unknown]
  - Throat irritation [Unknown]
  - Chest pain [Unknown]
